FAERS Safety Report 18294409 (Version 1)
Quarter: 2020Q3

REPORT INFORMATION
  Report Type: Spontaneous
  Country: US (occurrence: US)
  Receive Date: 20200922
  Receipt Date: 20200922
  Transmission Date: 20201103
  Serious: Yes (Other)
  Sender: FDA-Public Use
  Company Number: None

PATIENT
  Age: 44 Year
  Sex: Female
  Weight: 60.3 kg

DRUGS (12)
  1. LORAZEPAM. [Concomitant]
     Active Substance: LORAZEPAM
  2. HYDROCORTISONE CREAM [Concomitant]
     Active Substance: HYDROCORTISONE
  3. SIMPONI [Concomitant]
     Active Substance: GOLIMUMAB
  4. AMITIZA [Concomitant]
     Active Substance: LUBIPROSTONE
  5. PRENATAL GUMMY VITAMINS [Concomitant]
  6. CIMZIA [Suspect]
     Active Substance: CERTOLIZUMAB PEGOL
     Indication: RHEUMATOID ARTHRITIS
     Dosage: ?          QUANTITY:2 INJECTION(S);OTHER FREQUENCY:ONCE A MONTH;?
     Route: 058
     Dates: start: 20200429, end: 20200716
  7. TRAMADOL. [Concomitant]
     Active Substance: TRAMADOL
  8. AMITIZA [Concomitant]
     Active Substance: LUBIPROSTONE
  9. ALBUTEROL INHALER [Concomitant]
     Active Substance: ALBUTEROL
  10. CIMZIA [Suspect]
     Active Substance: CERTOLIZUMAB PEGOL
     Indication: POLYCHONDRITIS
     Dosage: ?          QUANTITY:2 INJECTION(S);OTHER FREQUENCY:ONCE A MONTH;?
     Route: 058
     Dates: start: 20200429, end: 20200716
  11. QUETIAPINE. [Concomitant]
     Active Substance: QUETIAPINE
  12. CLOBETASOL CREAM [Concomitant]
     Active Substance: CLOBETASOL

REACTIONS (1)
  - Psoriasis [None]

NARRATIVE: CASE EVENT DATE: 20200708
